FAERS Safety Report 12639829 (Version 2)
Quarter: 2016Q3

REPORT INFORMATION
  Report Type: Spontaneous
  Country: GB (occurrence: GB)
  Receive Date: 20160810
  Receipt Date: 20160928
  Transmission Date: 20161109
  Serious: Yes (Disabling, Other)
  Sender: FDA-Public Use
  Company Number: GB-TEVA-682424ACC

PATIENT
  Age: 60 Year
  Sex: Male

DRUGS (2)
  1. KEPPRA [Interacting]
     Active Substance: LEVETIRACETAM
  2. TEVA UK MELOXICAM [Suspect]
     Active Substance: MELOXICAM
     Indication: JOINT INJURY
     Route: 048
     Dates: start: 20160608, end: 20160626

REACTIONS (2)
  - Seizure [Recovered/Resolved]
  - Inhibitory drug interaction [Unknown]

NARRATIVE: CASE EVENT DATE: 20160626
